FAERS Safety Report 9643087 (Version 1)
Quarter: 2013Q4

REPORT INFORMATION
  Report Type: Spontaneous
  Country: US (occurrence: None)
  Receive Date: 20131023
  Receipt Date: 20131023
  Transmission Date: 20140711
  Serious: Yes (Other)
  Sender: FDA-Public Use
  Company Number: None

PATIENT
  Age: 63 Year
  Sex: Female

DRUGS (1)
  1. TASIGNA [Suspect]
     Indication: CHRONIC MYELOID LEUKAEMIA
     Dosage: TASIGNA 200MG, 2BID, PO
     Route: 048
     Dates: start: 201202

REACTIONS (3)
  - Drug ineffective [None]
  - Headache [None]
  - Local swelling [None]
